FAERS Safety Report 11165499 (Version 2)
Quarter: 2015Q2

REPORT INFORMATION
  Report Type: Spontaneous
  Country: US (occurrence: US)
  Receive Date: 20150604
  Receipt Date: 20150630
  Transmission Date: 20150821
  Serious: No
  Sender: FDA-Public Use
  Company Number: US-TEVA-564227USA

PATIENT
  Age: 77 Year
  Sex: Male

DRUGS (10)
  1. SINEMET [Concomitant]
     Active Substance: CARBIDOPA\LEVODOPA
     Indication: PARKINSON^S DISEASE
  2. LOSARTAN [Concomitant]
     Active Substance: LOSARTAN
     Dosage: 160 MILLIGRAM DAILY;
  3. COREG [Concomitant]
     Active Substance: CARVEDILOL
     Indication: HYPERTENSION
  4. IBUPROFEN. [Concomitant]
     Active Substance: IBUPROFEN
     Indication: PAIN
     Dosage: PRN
  5. AZILECT [Suspect]
     Active Substance: RASAGILINE MESYLATE
     Indication: PARKINSON^S DISEASE
     Dosage: 1 MILLIGRAM DAILY;
     Dates: start: 201411
  6. VITAMIN D [Concomitant]
     Active Substance: CHOLECALCIFEROL
  7. CELEXA [Suspect]
     Active Substance: CITALOPRAM HYDROBROMIDE
     Indication: DEPRESSION
     Route: 065
  8. TRAMADOL [Suspect]
     Active Substance: TRAMADOL
     Indication: PAIN
     Dosage: 50 MILLIGRAM DAILY;
     Route: 065
  9. KLONOPIN [Concomitant]
     Active Substance: CLONAZEPAM
  10. MELATONIN [Concomitant]
     Active Substance: MELATONIN
     Indication: SLEEP DISORDER

REACTIONS (8)
  - Heart rate decreased [Not Recovered/Not Resolved]
  - Confusional state [Not Recovered/Not Resolved]
  - Blood pressure decreased [Not Recovered/Not Resolved]
  - Drug prescribing error [Not Recovered/Not Resolved]
  - Weight decreased [Not Recovered/Not Resolved]
  - Depression [Not Recovered/Not Resolved]
  - Dysphagia [Not Recovered/Not Resolved]
  - Dizziness [Not Recovered/Not Resolved]

NARRATIVE: CASE EVENT DATE: 201411
